FAERS Safety Report 6100059-X (Version None)
Quarter: 2009Q1

REPORT INFORMATION
  Report Type: 
  Country: None (occurrence: None)
  Receive Date: 20090303
  Receipt Date: 20090226
  Transmission Date: 20090719
  Serious: Yes (Other)
  Sender: FDA-Public Use
  Company Number: B0561731A

PATIENT
  Age: 10 Year
  Sex: Male
  Weight: 32 kg

DRUGS (1)
  1. RELENZA [Suspect]
     Route: 055
     Dates: end: 20090215

REACTIONS (3)
  - AGGRESSION [None]
  - CONFUSIONAL STATE [None]
  - COUGH [None]
